FAERS Safety Report 7320909-9 (Version None)
Quarter: 2011Q1

REPORT INFORMATION
  Report Type: 
  Country: None (occurrence: None)
  Receive Date: 20110228
  Receipt Date: 20110223
  Transmission Date: 20110831
  Serious: Yes (Life-Threatening, Hospitalization)
  Sender: FDA-Public Use
  Company Number: PT-MERCK-1102PRT00019

PATIENT
  Age: 55 Year
  Sex: Male
  Weight: 78 kg

DRUGS (4)
  1. ROSUVASTATIN CALCIUM [Suspect]
     Indication: DYSLIPIDAEMIA
     Route: 048
     Dates: end: 20100628
  2. MOMETASONE FUROATE [Concomitant]
     Indication: RHINITIS
     Route: 065
  3. TRANDOLAPRIL [Concomitant]
     Indication: HYPERTENSION
     Route: 048
     Dates: end: 20100628
  4. ZETIA [Suspect]
     Indication: DYSLIPIDAEMIA
     Route: 048
     Dates: end: 20100628

REACTIONS (3)
  - HAEMORRHAGE [None]
  - EPISTAXIS [None]
  - DRUG INTERACTION [None]
